FAERS Safety Report 13331907 (Version 1)
Quarter: 2017Q1

REPORT INFORMATION
  Report Type: Spontaneous
  Country: US (occurrence: US)
  Receive Date: 20170314
  Receipt Date: 20170314
  Transmission Date: 20170428
  Serious: No
  Sender: FDA-Public Use
  Company Number: US-JNJFOC-20170208232

PATIENT
  Sex: Female
  Weight: 62.14 kg

DRUGS (3)
  1. WARFARIN [Concomitant]
     Active Substance: WARFARIN
     Indication: ANTICOAGULANT THERAPY
     Route: 065
  2. TYLENOL ARTHRITIS PAIN [Suspect]
     Active Substance: ACETAMINOPHEN
     Route: 048
  3. TYLENOL ARTHRITIS PAIN [Suspect]
     Active Substance: ACETAMINOPHEN
     Indication: ARTHRALGIA
     Dosage: SOMETIME 2 CAPLETS PER DAY OR 2 CAPLETS TWICE A  DAY.
     Route: 048
     Dates: end: 20170207

REACTIONS (3)
  - Off label use [Unknown]
  - Somnolence [Unknown]
  - Inappropriate schedule of drug administration [Unknown]
